FAERS Safety Report 19137933 (Version 1)
Quarter: 2021Q2

REPORT INFORMATION
  Report Type: Spontaneous
  Country: US (occurrence: US)
  Receive Date: 20210415
  Receipt Date: 20210415
  Transmission Date: 20210717
  Serious: Yes (Other)
  Sender: FDA-Public Use
  Company Number: US-AUROBINDO-AUR-APL-2021-015373

PATIENT
  Sex: Female

DRUGS (11)
  1. R?GDP [DEXAMETHASONE] [Suspect]
     Active Substance: DEXAMETHASONE
  2. CYCLOPHOSPHAMIDE;DOXORUBICIN;PREDNISOLONE;RITUXIMAB;VINCRISTINE [Suspect]
     Active Substance: CYCLOPHOSPHAMIDE\DOXORUBICIN\PREDNISONE\RITUXIMAB\VINCRISTINE
     Indication: PRODUCT USED FOR UNKNOWN INDICATION
     Dosage: UNK
     Route: 065
  3. CARMUSTINE;CYTARABINE;ETOPOSIDE;MELPHALAN [Suspect]
     Active Substance: CARMUSTINE\CYTARABINE\ETOPOSIDE\MELPHALAN
     Indication: PRODUCT USED FOR UNKNOWN INDICATION
     Dosage: UNK
     Route: 065
  4. R?GDP [RITUXIMAB] [Suspect]
     Active Substance: RITUXIMAB
     Indication: PRODUCT USED FOR UNKNOWN INDICATION
     Dosage: UNK
     Route: 065
  5. R?GDP [GEMCITABINE] [Suspect]
     Active Substance: GEMCITABINE
  6. VINCRISTINE SULFATE. [Suspect]
     Active Substance: VINCRISTINE SULFATE
     Indication: PRODUCT USED FOR UNKNOWN INDICATION
     Dosage: UNK
     Route: 065
  7. RICE [RITUXIMAB] [Suspect]
     Active Substance: RITUXIMAB
     Indication: PRODUCT USED FOR UNKNOWN INDICATION
     Dosage: UNK
     Route: 065
  8. RICE [IFOSFAMIDE] [Suspect]
     Active Substance: IFOSFAMIDE
  9. RICE [CARBOPLATIN] [Suspect]
     Active Substance: CARBOPLATIN
  10. RICE [ETOPOSIDE PHOSPHATE] [Suspect]
     Active Substance: ETOPOSIDE PHOSPHATE
  11. R?GDP [CISPLATIN] [Suspect]
     Active Substance: CISPLATIN

REACTIONS (1)
  - Drug ineffective [Unknown]
